FAERS Safety Report 25401337 (Version 1)
Quarter: 2025Q2

REPORT INFORMATION
  Report Type: Spontaneous
  Country: US (occurrence: None)
  Receive Date: 20250604
  Receipt Date: 20250604
  Transmission Date: 20250716
  Serious: Yes (Life-Threatening, Hospitalization)
  Sender: FDA-CTU
  Company Number: None

PATIENT
  Age: 54 Year
  Sex: Female
  Weight: 143 kg

DRUGS (4)
  1. INAVOLISIB [Suspect]
     Active Substance: INAVOLISIB
     Indication: Breast cancer metastatic
     Route: 048
     Dates: start: 20250213, end: 20250416
  2. INAVOLISIB [Suspect]
     Active Substance: INAVOLISIB
     Indication: PIK3CA-activated mutation
  3. IBRANCE [Concomitant]
     Active Substance: PALBOCICLIB
     Dates: start: 20231001
  4. EXEMESTANE [Concomitant]
     Active Substance: EXEMESTANE
     Dates: start: 20221001

REACTIONS (3)
  - Hyperglycaemia [None]
  - Acute kidney injury [None]
  - Dialysis [None]

NARRATIVE: CASE EVENT DATE: 20250506
